FAERS Safety Report 8018602-2 (Version None)
Quarter: 2011Q4

REPORT INFORMATION
  Report Type: 
  Country: None (occurrence: None)
  Receive Date: 20111228
  Receipt Date: 20111215
  Transmission Date: 20120403
  Serious: Yes (Other)
  Sender: FDA-Public Use
  Company Number: JP-2011-13136

PATIENT
  Age: 83 Year
  Sex: Male

DRUGS (3)
  1. LASIX [Concomitant]
  2. SAMSCA [Suspect]
     Indication: CARDIAC FAILURE
     Dosage: 7.5 MG MILLIGRAM(S) DAILY DOSE, ORAL
     Route: 048
  3. TRICHLORMETHIAZIDE [Concomitant]

REACTIONS (2)
  - HYPERNATRAEMIA [None]
  - ALTERED STATE OF CONSCIOUSNESS [None]
